FAERS Safety Report 7728241-6 (Version None)
Quarter: 2011Q3

REPORT INFORMATION
  Report Type: 
  Country: None (occurrence: None)
  Receive Date: 20110905
  Receipt Date: 20110826
  Transmission Date: 20111222
  Serious: Yes (Other)
  Sender: FDA-Public Use
  Company Number: PHHY2011IT76733

PATIENT
  Sex: Male

DRUGS (2)
  1. ZOMETA [Suspect]
     Indication: BONE LESION
     Dates: start: 20100101
  2. FEMARA [Concomitant]
     Indication: BREAST CANCER
     Dosage: UNK

REACTIONS (3)
  - TUMOUR MARKER INCREASED [None]
  - OSTEITIS [None]
  - GRANULOMA [None]
